FAERS Safety Report 14483327 (Version 1)
Quarter: 2018Q1

REPORT INFORMATION
  Report Type: Spontaneous
  Country: US (occurrence: US)
  Receive Date: 20180204
  Receipt Date: 20180204
  Transmission Date: 20180509
  Serious: No
  Sender: FDA-Public Use
  Company Number: US-GLAXOSMITHKLINE-US2018GSK017638

PATIENT
  Sex: Male

DRUGS (10)
  1. HYDROCHLOROTHIAZIDE. [Concomitant]
     Active Substance: HYDROCHLOROTHIAZIDE
  2. VOLTAREN [Suspect]
     Active Substance: DICLOFENAC SODIUM
     Indication: PRODUCT USED FOR UNKNOWN INDICATION
     Route: 061
  3. PENNSAID [Suspect]
     Active Substance: DICLOFENAC SODIUM
     Indication: JOINT INJURY
     Dosage: UNK UNK, BID
     Route: 061
     Dates: start: 20171228, end: 20171229
  4. CELEBREX [Concomitant]
     Active Substance: CELECOXIB
  5. BYSTOLIC [Concomitant]
     Active Substance: NEBIVOLOL HYDROCHLORIDE
  6. ASPIRIN. [Concomitant]
     Active Substance: ASPIRIN
  7. ZETIA [Concomitant]
     Active Substance: EZETIMIBE
  8. COUMADIN [Suspect]
     Active Substance: WARFARIN SODIUM
     Indication: PRODUCT USED FOR UNKNOWN INDICATION
  9. LOSARTAN. [Concomitant]
     Active Substance: LOSARTAN
  10. SIMVASTATIN. [Concomitant]
     Active Substance: SIMVASTATIN

REACTIONS (1)
  - Petechiae [Unknown]
